FAERS Safety Report 4576372-4 (Version None)
Quarter: 2005Q1

REPORT INFORMATION
  Report Type: 
  Country: None (occurrence: None)
  Receive Date: 20050207
  Receipt Date: 20050128
  Transmission Date: 20050727
  Serious: Yes (Other)
  Sender: FDA-Public Use
  Company Number: 2005020879

PATIENT
  Age: 46 Year
  Sex: Male

DRUGS (2)
  1. ATARAX [Suspect]
     Indication: ILL-DEFINED DISORDER
     Dosage: 500 MG (25 MG, 20 IN 1 D), ORAL
     Route: 048
  2. CLONIDINE [Suspect]
     Indication: ILL-DEFINED DISORDER
     Dosage: 1.5 MG (75 MCG, 20 IN 1 D), ORAL
     Route: 048

REACTIONS (4)
  - HYPOTENSION [None]
  - OVERDOSE [None]
  - SOMNOLENCE [None]
  - SUICIDE ATTEMPT [None]
